FAERS Safety Report 8582168-9 (Version None)
Quarter: 2012Q3

REPORT INFORMATION
  Report Type: 
  Country: None (occurrence: None)
  Receive Date: 20120809
  Receipt Date: 20120322
  Transmission Date: 20120928
  Serious: Yes (Death, Hospitalization, Other)
  Sender: FDA-Public Use
  Company Number: PHHY2012CO066738

PATIENT
  Sex: Female

DRUGS (1)
  1. TASIGNA [Suspect]

REACTIONS (4)
  - METASTASES TO EYE [None]
  - DEATH [None]
  - INFLUENZA [None]
  - GINGIVAL BLEEDING [None]
